FAERS Safety Report 7658209-X (Version None)
Quarter: 2011Q3

REPORT INFORMATION
  Report Type: 
  Country: None (occurrence: None)
  Receive Date: 20110805
  Receipt Date: 20110728
  Transmission Date: 20111222
  Serious: Yes (Hospitalization, Other)
  Sender: FDA-Public Use
  Company Number: GB-JNJFOC-20110102769

PATIENT
  Sex: Male

DRUGS (5)
  1. LANSOPRAZOLE [Concomitant]
     Indication: GASTROINTESTINAL DISORDER THERAPY
     Route: 065
     Dates: start: 20101201
  2. COTRIM [Concomitant]
     Indication: ANTIFUNGAL PROPHYLAXIS
     Route: 065
     Dates: start: 20101101
  3. DARUNAVIR [Suspect]
     Indication: HIV INFECTION
     Route: 048
     Dates: start: 20101129, end: 20101223
  4. RITONAVIR [Concomitant]
     Indication: HIV INFECTION
     Route: 048
     Dates: start: 20101129, end: 20101223
  5. FERROUS SULFATE TAB [Concomitant]
     Indication: ANAEMIA
     Route: 065

REACTIONS (1)
  - MYOSITIS [None]
